FAERS Safety Report 7797907-4 (Version None)
Quarter: 2011Q4

REPORT INFORMATION
  Report Type: 
  Country: None (occurrence: None)
  Receive Date: 20111005
  Receipt Date: 20110930
  Transmission Date: 20120403
  Serious: Yes (Other)
  Sender: FDA-Public Use
  Company Number: JP-ABBOTT-11P-087-0860250-00

PATIENT
  Sex: Female
  Weight: 54 kg

DRUGS (9)
  1. AZATHIOPRINE [Concomitant]
     Indication: CROHN'S DISEASE
     Route: 048
  2. MESALAMINE [Concomitant]
     Indication: CROHN'S DISEASE
     Route: 048
  3. FOLIC ACID [Concomitant]
     Indication: PRODUCT USED FOR UNKNOWN INDICATION
     Route: 048
  4. ENTERAL NUTRITION [Concomitant]
     Indication: CROHN'S DISEASE
  5. HUMIRA [Suspect]
     Indication: CROHN'S DISEASE
     Route: 058
     Dates: start: 20101105, end: 20101105
  6. RABEPRAZOLE SODIUM [Concomitant]
     Indication: PRODUCT USED FOR UNKNOWN INDICATION
     Route: 048
  7. HUMIRA [Suspect]
     Dates: start: 20101124, end: 20101124
  8. HUMIRA [Suspect]
     Dates: start: 20101208
  9. LOPERAMIDE HCL [Concomitant]
     Indication: CROHN'S DISEASE
     Route: 048

REACTIONS (4)
  - INTESTINAL OBSTRUCTION [None]
  - ANAL STENOSIS [None]
  - PHARYNGITIS [None]
  - PYREXIA [None]
